FAERS Safety Report 6559060-4 (Version None)
Quarter: 2010Q1

REPORT INFORMATION
  Report Type: 
  Country: None (occurrence: None)
  Receive Date: 20100129
  Receipt Date: 20100118
  Transmission Date: 20100710
  Serious: Yes (Hospitalization, Other)
  Sender: FDA-Public Use
  Company Number: US-ELI_LILLY_AND_COMPANY-US200912002702

PATIENT
  Age: 79 Year
  Sex: Female

DRUGS (5)
  1. FORTEO [Suspect]
     Indication: OSTEOPOROSIS
     Dosage: 20 UG, DAILY (1/D)
     Route: 065
     Dates: start: 20091101, end: 20091101
  2. FORTEO [Suspect]
     Dosage: 20 UG, DAILY (1/D)
     Dates: start: 20090101
  3. DIOVAN [Concomitant]
     Indication: BLOOD PRESSURE
  4. ASPIRIN [Concomitant]
  5. VITAMINS NOS [Concomitant]

REACTIONS (5)
  - APPLICATION SITE ERYTHEMA [None]
  - FALL [None]
  - HIP FRACTURE [None]
  - PAIN [None]
  - RASH [None]
